FAERS Safety Report 7458990-9 (Version None)
Quarter: 2011Q2

REPORT INFORMATION
  Report Type: 
  Country: None (occurrence: None)
  Receive Date: 20110504
  Receipt Date: 20110502
  Transmission Date: 20111010
  Serious: Yes (Death)
  Sender: FDA-Public Use
  Company Number: UA-TEVA-XM22-04-254332GER

PATIENT
  Sex: Male
  Weight: 80 kg

DRUGS (49)
  1. XM22 PEG-FILGRASTIM [Suspect]
     Dosage: BLINDED XM22 6 MG OR PLACEBO
     Route: 058
     Dates: start: 20100911, end: 20100911
  2. CISPLATIN [Suspect]
     Dosage: 160 MILLIGRAM;
     Route: 041
     Dates: start: 20100908, end: 20100908
  3. ETOPOSIDE [Suspect]
     Indication: NON-SMALL CELL LUNG CANCER
     Dosage: 246 MILLIGRAM;
     Route: 041
     Dates: start: 20100723, end: 20100725
  4. ONDANSETRON [Concomitant]
     Indication: VOMITING
     Dosage: 8 MILLIGRAM;
     Route: 042
     Dates: start: 20100818, end: 20100820
  5. DIPHENHYDRAMINE [Concomitant]
     Dosage: 1 ML;
     Route: 042
     Dates: start: 20100908, end: 20100910
  6. DIPHENHYDRAMINE [Concomitant]
     Dosage: 1 ML;
     Route: 042
     Dates: start: 20101022, end: 20101022
  7. DEXAMETHASONE [Concomitant]
     Indication: PREMEDICATION
     Dosage: 8 MILLIGRAM;
     Route: 042
     Dates: start: 20100723, end: 20100725
  8. TOT'HEMA [Concomitant]
     Indication: ANAEMIA
     Dosage: 10 ML;
     Route: 048
     Dates: start: 20100828, end: 20101021
  9. METAMIZOLE SODIUM [Concomitant]
     Dosage: 4 ML;
     Route: 042
     Dates: start: 20101022, end: 20101022
  10. PRIMAXIN [Concomitant]
     Indication: FEBRILE NEUTROPENIA
     Dosage: 1500 MILLIGRAM;
     Route: 042
     Dates: start: 20101022, end: 20101023
  11. FUROSEMIDE [Concomitant]
     Indication: PULMONARY OEDEMA
     Dosage: 2 ML;
     Route: 042
     Dates: start: 20101022, end: 20101023
  12. ONDANSETRON [Concomitant]
     Dosage: 8 MILLIGRAM;
     Route: 042
     Dates: start: 20100908, end: 20100911
  13. DIPHENHYDRAMINE [Concomitant]
     Indication: PULMONARY OEDEMA
     Dosage: 1 ML;
     Route: 042
     Dates: start: 20100818, end: 20100820
  14. DIPHENHYDRAMINE [Concomitant]
     Dosage: 1 ML;
     Route: 030
     Dates: start: 20101021, end: 20101021
  15. PLASMA [Concomitant]
     Indication: ANAEMIA
     Dosage: 170 ML;
     Route: 042
     Dates: start: 20101021, end: 20101021
  16. NIKETHAMIDE [Concomitant]
     Indication: PULMONARY OEDEMA
     Dosage: 2 ML;
     Route: 030
     Dates: start: 20101022
  17. AMINOCAPROIC ACID [Concomitant]
     Indication: PULMONARY OEDEMA
     Dosage: 100 ML;
     Route: 042
     Dates: start: 20101021, end: 20101021
  18. PREDNISOLONE [Concomitant]
     Indication: PULMONARY OEDEMA
     Route: 030
     Dates: start: 20101022
  19. DEXAMETHASONE [Concomitant]
     Dosage: 8 MILLIGRAM;
     Route: 042
     Dates: start: 20101011, end: 20101013
  20. DEXAMETHASONE [Concomitant]
     Route: 042
     Dates: start: 20101022, end: 20101023
  21. AMINOPHYLLINE [Concomitant]
     Indication: PULMONARY OEDEMA
     Route: 042
     Dates: start: 20101022, end: 20101023
  22. CORGLYCON (CONVALLARIA MAJALIS EXTRACT) [Concomitant]
     Indication: PULMONARY OEDEMA
     Route: 042
     Dates: start: 20101022, end: 20101023
  23. DIPHENHYDRAMINE [Concomitant]
     Dosage: 1 ML;
     Route: 042
     Dates: start: 20101011, end: 20101013
  24. DEXAMETHASONE [Concomitant]
     Dosage: 8 MILLIGRAM;
     Route: 042
     Dates: start: 20100818, end: 20100820
  25. SODIUM CHLORIDE [Concomitant]
     Dosage: 400 ML;
     Route: 042
     Dates: start: 20100813, end: 20100815
  26. CISPLATIN [Suspect]
     Dosage: 160 MILLIGRAM;
     Route: 041
     Dates: start: 20101011, end: 20101011
  27. ETOPOSIDE [Suspect]
     Dosage: 242 MILLIGRAM;
     Route: 041
     Dates: start: 20100818, end: 20100820
  28. ONDANSETRON [Concomitant]
     Dosage: 8 MILLIGRAM;
     Route: 042
     Dates: start: 20101011, end: 20101013
  29. ASCORBIC ACID [Concomitant]
     Dosage: 6 ML;
     Route: 042
     Dates: start: 20100813, end: 20100815
  30. ETAMSILATE [Concomitant]
     Indication: PULMONARY OEDEMA
     Dosage: 4 ML;
     Dates: start: 20101021, end: 20101021
  31. METAMIZOLE SODIUM [Concomitant]
     Indication: PULMONARY OEDEMA
     Dosage: 2 ML;
     Route: 030
     Dates: start: 20101021, end: 20101021
  32. DOPAMINE HCL [Concomitant]
     Indication: PULMONARY OEDEMA
     Dosage: 5 ML;
     Route: 042
     Dates: start: 20101022, end: 20101023
  33. XM22 PEG-FILGRASTIM [Suspect]
     Indication: COLONY STIMULATING FACTOR PROPHYLAXIS
     Dosage: BLINDED XM22 6 MG OR PLACEBO
     Route: 058
     Dates: start: 20100726, end: 20100726
  34. XM22 PEG-FILGRASTIM [Suspect]
     Dosage: BLINDED XM22 6 MG OR PLACEBO
     Route: 058
     Dates: start: 20100821, end: 20100821
  35. XM22 PEG-FILGRASTIM [Suspect]
     Dosage: BLINDED XM22 6 MG OR PLACEBO
     Route: 058
     Dates: start: 20101014, end: 20101014
  36. CISPLATIN [Suspect]
     Indication: NON-SMALL CELL LUNG CANCER
     Dosage: 164 MILLIGRAM;
     Route: 041
     Dates: start: 20100723, end: 20100723
  37. CISPLATIN [Suspect]
     Dosage: 161 MILLIGRAM;
     Route: 041
     Dates: start: 20100818, end: 20100818
  38. ONDANSETRON [Concomitant]
     Indication: PREMEDICATION
     Dosage: 8 MILLIGRAM;
     Route: 042
     Dates: start: 20100723, end: 20100725
  39. DIPHENHYDRAMINE [Concomitant]
     Indication: PREMEDICATION
     Dosage: 1 ML;
     Route: 042
     Dates: start: 20100723, end: 20100725
  40. DEXAMETHASONE [Concomitant]
     Indication: PULMONARY OEDEMA
     Dosage: 8 MILLIGRAM;
     Route: 042
     Dates: start: 20100813, end: 20100815
  41. RED BLOOD CELLS [Concomitant]
     Indication: ANAEMIA
     Dosage: 223 ML;
     Route: 042
     Dates: start: 20101021, end: 20101021
  42. PLASMA [Concomitant]
     Dosage: 230 ML;
     Route: 042
     Dates: start: 20101022, end: 20101022
  43. L-LYSINE AESCINATE [Concomitant]
     Indication: PULMONARY OEDEMA
     Dosage: 5 ML;
     Route: 042
     Dates: start: 20101022, end: 20101023
  44. ETOPOSIDE [Suspect]
     Dosage: 240 MILLIGRAM;
     Route: 041
     Dates: start: 20100908, end: 20100910
  45. ETOPOSIDE [Suspect]
     Dosage: 240 MILLIGRAM;
     Route: 041
     Dates: start: 20101011, end: 20101013
  46. ONDANSETRON [Concomitant]
     Dosage: 8 MILLIGRAM;
     Route: 042
     Dates: start: 20101021, end: 20101021
  47. DEXAMETHASONE [Concomitant]
     Dosage: 8 MILLIGRAM;
     Route: 042
     Dates: start: 20100908, end: 20100910
  48. COCARBOXYLASE [Concomitant]
     Indication: PULMONARY OEDEMA
     Dosage: 50 MILLIGRAM;
     Route: 030
     Dates: start: 20101022, end: 20101022
  49. INOSINE [Concomitant]
     Indication: PULMONARY OEDEMA
     Dosage: 5 ML;
     Route: 042
     Dates: start: 20101022, end: 20101022

REACTIONS (1)
  - PULMONARY OEDEMA [None]
